FAERS Safety Report 6829693-6 (Version None)
Quarter: 2010Q3

REPORT INFORMATION
  Report Type: 
  Country: None (occurrence: None)
  Receive Date: 20100706
  Receipt Date: 20100625
  Transmission Date: 20110219
  Serious: Yes (Hospitalization)
  Sender: FDA-Public Use
  Company Number: 102052

PATIENT
  Age: 58 Year
  Sex: Male

DRUGS (1)
  1. CISPLATIN [Suspect]
     Indication: HEAD AND NECK CANCER
     Dosage: 144MG, 142MG
     Dates: start: 20100526, end: 20100616

REACTIONS (2)
  - MUCOSAL INFLAMMATION [None]
  - PAIN [None]
